FAERS Safety Report 20603565 (Version 1)
Quarter: 2022Q1

REPORT INFORMATION
  Report Type: Report from Study
  Country: US (occurrence: US)
  Receive Date: 20220316
  Receipt Date: 20220316
  Transmission Date: 20220423
  Serious: No
  Sender: FDA-Public Use
  Company Number: US-BIOVITRUM-2022US02286

PATIENT
  Age: 1 Year
  Sex: Male

DRUGS (3)
  1. SYNAGIS [Suspect]
     Active Substance: PALIVIZUMAB
     Indication: Antiviral prophylaxis
     Dosage: 50 MG/0.5 ML
     Route: 030
     Dates: start: 20211228
  2. SYNAGIS [Suspect]
     Active Substance: PALIVIZUMAB
     Dosage: 50 MG/0.5 ML
     Route: 030
     Dates: start: 20211221
  3. SYNAGIS [Suspect]
     Active Substance: PALIVIZUMAB
     Dosage: 100MG/ML
     Route: 030
     Dates: start: 20211124

REACTIONS (3)
  - Vomiting [Unknown]
  - Urticaria [Unknown]
  - Product dose omission issue [Unknown]

NARRATIVE: CASE EVENT DATE: 20220304
